FAERS Safety Report 4774752-5 (Version None)
Quarter: 2005Q3

REPORT INFORMATION
  Report Type: 
  Country: None (occurrence: None)
  Receive Date: 20050921
  Receipt Date: 20050914
  Transmission Date: 20060218
  Serious: Yes (Other)
  Sender: FDA-Public Use
  Company Number: GB-GLAXOSMITHKLINE-B0393932A

PATIENT
  Age: 30 Year
  Sex: Male

DRUGS (1)
  1. SEROXAT [Suspect]
     Route: 065

REACTIONS (1)
  - MURDER [None]
